FAERS Safety Report 25569381 (Version 1)
Quarter: 2025Q3

REPORT INFORMATION
  Report Type: Spontaneous
  Country: US (occurrence: US)
  Receive Date: 20250716
  Receipt Date: 20250716
  Transmission Date: 20251021
  Serious: Yes (Death)
  Sender: BAUSCH AND LOMB
  Company Number: US-BAUSCH-BH-2025-014638

PATIENT
  Age: 48 Year
  Sex: Female

DRUGS (2)
  1. BUPROPION [Suspect]
     Active Substance: BUPROPION
     Indication: Product used for unknown indication
  2. PROPRANOLOL [Suspect]
     Active Substance: PROPRANOLOL HYDROCHLORIDE
     Indication: Product used for unknown indication
     Route: 065

REACTIONS (9)
  - Seizure [Fatal]
  - Metabolic acidosis [Fatal]
  - Tachycardia [Fatal]
  - Bundle branch block right [Fatal]
  - Bundle branch block left [Fatal]
  - Hypotension [Fatal]
  - Lethargy [Fatal]
  - Cardiogenic shock [Fatal]
  - Intentional overdose [Fatal]
